FAERS Safety Report 6956949-9 (Version None)
Quarter: 2010Q3

REPORT INFORMATION
  Report Type: 
  Country: None (occurrence: None)
  Receive Date: 20100827
  Receipt Date: 20100827
  Transmission Date: 20110219
  Serious: No
  Sender: FDA-Public Use
  Company Number: None

PATIENT
  Sex: Female
  Weight: 50.9843 kg

DRUGS (1)
  1. PERCOCET [Suspect]
     Dosage: 10/325 MG Q 4 HRS ORAL
     Route: 048

REACTIONS (4)
  - DRUG INTOLERANCE [None]
  - GASTROINTESTINAL DISORDER [None]
  - NO THERAPEUTIC RESPONSE [None]
  - PRODUCT SUBSTITUTION ISSUE [None]
